FAERS Safety Report 6714067-9 (Version None)
Quarter: 2010Q2

REPORT INFORMATION
  Report Type: 
  Country: None (occurrence: None)
  Receive Date: 20100503
  Receipt Date: 20080226
  Transmission Date: 20101027
  Serious: Yes (Hospitalization, Other)
  Sender: FDA-Public Use
  Company Number: LEO-2010-00310

PATIENT
  Age: 47 Year
  Sex: Male
  Weight: 75 kg

DRUGS (1)
  1. INNOHEP [Suspect]
     Indication: THROMBOSIS PROPHYLAXIS
     Dosage: (3500 IU), SUBCUTANEOUS
     Route: 058
     Dates: start: 20080114, end: 20080212

REACTIONS (4)
  - OFF LABEL USE [None]
  - PHLEBITIS [None]
  - PULMONARY EMBOLISM [None]
  - THROMBOSIS [None]
